FAERS Safety Report 7641391-8 (Version None)
Quarter: 2011Q3

REPORT INFORMATION
  Report Type: 
  Country: None (occurrence: None)
  Receive Date: 20110728
  Receipt Date: 20110720
  Transmission Date: 20111222
  Serious: Yes (Hospitalization, Other)
  Sender: FDA-Public Use
  Company Number: US-ASTRAZENECA-2009UW03524

PATIENT
  Age: 56 Year
  Sex: Female
  Weight: 95.3 kg

DRUGS (8)
  1. SEROQUEL [Suspect]
     Indication: BIPOLAR DISORDER
     Dosage: 25 TO 100 MG
     Route: 048
     Dates: start: 20050615, end: 20060919
  2. FLUOXETINE [Concomitant]
     Dates: start: 20050816, end: 20070717
  3. SEROQUEL [Suspect]
     Indication: DEPRESSION
     Dosage: 25 TO 100 MG
     Route: 048
     Dates: start: 20050615, end: 20060919
  4. TRAZODONE HCL [Concomitant]
     Dates: start: 20041208, end: 20090113
  5. LIPITOR [Concomitant]
     Dates: start: 20050721
  6. PHENDIMETRAZINE FUMARATE [Concomitant]
     Dates: start: 20090501
  7. CYMBALTA [Concomitant]
     Dosage: 30 TO 60 MG
     Dates: start: 20041110, end: 20090113
  8. CELEBREX [Concomitant]

REACTIONS (8)
  - HYPERGLYCAEMIA [None]
  - TYPE 2 DIABETES MELLITUS [None]
  - BLOOD TRIGLYCERIDES INCREASED [None]
  - DIABETIC NEUROPATHY [None]
  - OBESITY [None]
  - BLOOD CHOLESTEROL INCREASED [None]
  - BLADDER DISORDER [None]
  - HYPERLIPIDAEMIA [None]
